FAERS Safety Report 25799385 (Version 1)
Quarter: 2025Q3

REPORT INFORMATION
  Report Type: Spontaneous
  Country: JP (occurrence: JP)
  Receive Date: 20250913
  Receipt Date: 20250913
  Transmission Date: 20251021
  Serious: Yes (Hospitalization, Other)
  Sender: Medicap Laboratories
  Company Number: JP-Medicap-000046

PATIENT
  Age: 40 Year
  Sex: Male
  Weight: 35 kg

DRUGS (1)
  1. METFORMIN [Suspect]
     Active Substance: METFORMIN HYDROCHLORIDE
     Indication: Diabetes mellitus
     Dosage: METFORMIN WAS TAKING FROM 4MONTHS
     Route: 065

REACTIONS (1)
  - MELAS syndrome [Recovered/Resolved]
